FAERS Safety Report 13582561 (Version 1)
Quarter: 2017Q2

REPORT INFORMATION
  Report Type: Spontaneous
  Country: HR (occurrence: HR)
  Receive Date: 20170525
  Receipt Date: 20170525
  Transmission Date: 20170830
  Serious: Yes (Other)
  Sender: FDA-Public Use
  Company Number: HR-TEVA-771334ISR

PATIENT
  Age: 17 Year
  Sex: Female

DRUGS (3)
  1. VENTOLIN [Suspect]
     Active Substance: ALBUTEROL SULFATE
     Dosage: LIQUIDS, SYRUPS
     Route: 048
     Dates: start: 201702, end: 201702
  2. SILAPEN K [Suspect]
     Active Substance: PHENOXYMETHYLPENICILLIN CALCIUM
     Route: 048
     Dates: start: 201702, end: 201702
  3. CLARITINE [Suspect]
     Active Substance: LORATADINE
     Route: 048
     Dates: start: 201702, end: 201702

REACTIONS (3)
  - Somnolence [Unknown]
  - Suicide attempt [Unknown]
  - Intentional overdose [Unknown]

NARRATIVE: CASE EVENT DATE: 201702
